FAERS Safety Report 25043017 (Version 1)
Quarter: 2025Q1

REPORT INFORMATION
  Report Type: Spontaneous
  Country: GR (occurrence: GR)
  Receive Date: 20250305
  Receipt Date: 20250305
  Transmission Date: 20250409
  Serious: Yes (Hospitalization, Other)
  Sender: MYLAN
  Company Number: GR-RICHTER-2025-GR-001664

PATIENT
  Age: 39 Year
  Sex: Female

DRUGS (5)
  1. ESTRADIOL [Suspect]
     Active Substance: ESTRADIOL
     Indication: Product used for unknown indication
  2. PROGESTERONE [Suspect]
     Active Substance: PROGESTERONE
     Indication: Product used for unknown indication
  3. PROGESTERONE [Suspect]
     Active Substance: PROGESTERONE
  4. PROGESTERONE [Suspect]
     Active Substance: PROGESTERONE
     Indication: Product used for unknown indication
  5. PROGESTERONE [Suspect]
     Active Substance: PROGESTERONE

REACTIONS (9)
  - Ventricular arrhythmia [Recovering/Resolving]
  - Ventricular extrasystoles [Recovering/Resolving]
  - Dilatation atrial [Recovering/Resolving]
  - Mitral valve incompetence [Recovering/Resolving]
  - Tricuspid valve incompetence [Recovering/Resolving]
  - Cardiac aneurysm [Recovering/Resolving]
  - Pulmonary hypertension [Recovering/Resolving]
  - Off label use [Unknown]
  - Maternal exposure during pregnancy [Recovered/Resolved]
